FAERS Safety Report 5692526-8 (Version None)
Quarter: 2008Q2

REPORT INFORMATION
  Report Type: 
  Country: None (occurrence: None)
  Receive Date: 20080328
  Receipt Date: 20071122
  Transmission Date: 20081010
  Serious: Yes (Other)
  Sender: FDA-Public Use
  Company Number: 43053

PATIENT
  Age: 25 Year
  Sex: Female

DRUGS (1)
  1. ADRIAMYCIN PFS [Suspect]

REACTIONS (1)
  - NAUSEA [None]
